FAERS Safety Report 11619000 (Version 3)
Quarter: 2015Q4

REPORT INFORMATION
  Report Type: Spontaneous
  Country: IT (occurrence: IT)
  Receive Date: 20151012
  Receipt Date: 20151021
  Transmission Date: 20160304
  Serious: No
  Sender: FDA-Public Use
  Company Number: IT-SUN PHARMACEUTICAL INDUSTRIES LTD-2015RR-104166

PATIENT

DRUGS (2)
  1. VORICONAZOLE. [Interacting]
     Active Substance: VORICONAZOLE
     Indication: ASPERGILLUS INFECTION
     Dosage: 460 MG, DAILY
     Route: 042
     Dates: start: 20150914, end: 20150918
  2. PANTOPRAZOLO [Suspect]
     Active Substance: PANTOPRAZOLE SODIUM
     Indication: MELAENA
     Dosage: 80 MG, DAILY
     Route: 042
     Dates: start: 20150830, end: 20150918

REACTIONS (4)
  - Tremor [Recovered/Resolved]
  - Confabulation [Recovered/Resolved]
  - Hallucination [Recovered/Resolved]
  - Sopor [Recovered/Resolved]

NARRATIVE: CASE EVENT DATE: 20150917
